FAERS Safety Report 10409305 (Version 1)
Quarter: 2014Q1

REPORT INFORMATION
  Report Type: Spontaneous
  Country: US (occurrence: None)
  Receive Date: 20140131
  Receipt Date: 20140131
  Transmission Date: 20141002
  Serious: Yes (Other)
  Sender: FDA-Public Use
  Company Number: 102990U

PATIENT
  Sex: Female

DRUGS (2)
  1. KEPPRA [Suspect]
     Indication: CONVULSION
     Dosage: TITRATED DOSE
  2. DILANTIN [Concomitant]

REACTIONS (3)
  - Grand mal convulsion [None]
  - Convulsion [None]
  - Confusional state [None]
